FAERS Safety Report 9826258 (Version 2)
Quarter: 2014Q1

REPORT INFORMATION
  Report Type: Spontaneous
  Country: US (occurrence: US)
  Receive Date: 20140117
  Receipt Date: 20140207
  Transmission Date: 20141002
  Serious: No
  Sender: FDA-Public Use
  Company Number: US-BIOGENIDEC-2014BI000341

PATIENT
  Age: 68 Year
  Sex: Female
  Weight: 70 kg

DRUGS (13)
  1. TECFIDERA [Suspect]
     Indication: MULTIPLE SCLEROSIS
     Route: 048
     Dates: start: 20130823
  2. TECFIDERA [Suspect]
     Indication: MULTIPLE SCLEROSIS
     Route: 048
     Dates: start: 20130925
  3. PREDNISONE [Concomitant]
  4. AUGMENTIN [Concomitant]
  5. AMBIEN [Concomitant]
  6. LIPITOR [Concomitant]
  7. CLONAZEPAM [Concomitant]
  8. GABAPENTIN [Concomitant]
  9. DIAZEPAM [Concomitant]
  10. IMODIUM [Concomitant]
  11. LEXAPRO [Concomitant]
  12. PROVIGIL [Concomitant]
  13. OMEPRAZOLE [Concomitant]

REACTIONS (3)
  - Transient acantholytic dermatosis [Not Recovered/Not Resolved]
  - Nausea [Not Recovered/Not Resolved]
  - Diarrhoea [Not Recovered/Not Resolved]
